FAERS Safety Report 7826947-1 (Version None)
Quarter: 2011Q4

REPORT INFORMATION
  Report Type: 
  Country: None (occurrence: None)
  Receive Date: 20111020
  Receipt Date: 20111013
  Transmission Date: 20120403
  Serious: Yes (Other)
  Sender: FDA-Public Use
  Company Number: DE-UCBSA-029192

PATIENT
  Age: 26 Year
  Sex: Female

DRUGS (4)
  1. PETNIDAN [Concomitant]
     Indication: EPILEPSY
     Dosage: 250-0-500
     Route: 048
     Dates: start: 20101125
  2. VIMPAT [Suspect]
     Indication: EPILEPSY
     Dosage: 100-0-50
     Route: 048
     Dates: start: 20100518
  3. NOVORAPID [Concomitant]
  4. LANTUS [Concomitant]
     Indication: TYPE 1 DIABETES MELLITUS

REACTIONS (2)
  - PREMATURE DELIVERY [None]
  - PREGNANCY [None]
